FAERS Safety Report 11216413 (Version 1)
Quarter: 2015Q2

REPORT INFORMATION
  Report Type: Spontaneous
  Country: CH (occurrence: CH)
  Receive Date: 20150624
  Receipt Date: 20150624
  Transmission Date: 20150821
  Serious: Yes (Life-Threatening)
  Sender: FDA-Public Use
  Company Number: CH-AMGEN-CHESP2015061492

PATIENT
  Age: 59 Year
  Sex: Male
  Weight: 70 kg

DRUGS (9)
  1. PREGABALIN. [Concomitant]
     Active Substance: PREGABALIN
     Dosage: UNK
     Route: 048
  2. ZOFRAN                             /00955301/ [Concomitant]
     Active Substance: ONDANSETRON HYDROCHLORIDE
     Dosage: 8 MG/100 ML, 1 PER 1 TOTAL
     Route: 041
     Dates: start: 20150521, end: 20150521
  3. ZANTAC [Concomitant]
     Active Substance: RANITIDINE HYDROCHLORIDE
     Dosage: 150 MG, 1 PER 1 DAY
     Route: 048
     Dates: start: 20150521, end: 20150522
  4. FEXOFENADINE [Concomitant]
     Active Substance: FEXOFENADINE\FEXOFENADINE HYDROCHLORIDE
     Dosage: 180 MG, 1 PER 1 DAY
     Route: 048
     Dates: start: 20150521, end: 20150522
  5. KYPROLIS [Suspect]
     Active Substance: CARFILZOMIB
     Indication: PLASMA CELL MYELOMA
     Dosage: 20 MG/M2, 1 PER 1 DAY
     Route: 041
     Dates: start: 20150521, end: 20150522
  6. CALCIUM + VITAMIN D3 [Concomitant]
     Dosage: UNK
     Route: 048
  7. ASPIRIN                            /00002701/ [Concomitant]
     Active Substance: ASPIRIN
     Dosage: 100 MG, UNK
     Route: 048
  8. DEXAMETHASONE. [Concomitant]
     Active Substance: DEXAMETHASONE
     Dosage: 20 MG, 1 PER 1 DAY
     Route: 048
     Dates: start: 20150521, end: 20150522
  9. METFORMINE [Concomitant]
     Active Substance: METFORMIN HYDROCHLORIDE
     Dosage: UNK
     Route: 048

REACTIONS (9)
  - Pancreatic enzymes increased [Recovering/Resolving]
  - Anuria [Recovered/Resolved]
  - Lung infiltration [Recovered/Resolved]
  - Thrombotic microangiopathy [Recovering/Resolving]
  - Acute kidney injury [Not Recovered/Not Resolved]
  - Respiratory distress [Recovered/Resolved]
  - Hepatic enzyme increased [Recovering/Resolving]
  - Hypertension [Not Recovered/Not Resolved]
  - Haemoptysis [Recovered/Resolved]

NARRATIVE: CASE EVENT DATE: 201505
